FAERS Safety Report 9971481 (Version 2)
Quarter: 2014Q1

REPORT INFORMATION
  Report Type: Spontaneous
  Country: US (occurrence: None)
  Receive Date: 20140304
  Receipt Date: 20140318
  Transmission Date: 20141002
  Serious: Yes (Hospitalization)
  Sender: FDA-Public Use
  Company Number: AXC-2014-000130

PATIENT
  Age: 79 Year
  Sex: Male
  Weight: 64.4 kg

DRUGS (8)
  1. ZENPEP [Suspect]
     Indication: PANCREATITIS CHRONIC
     Dosage: 20000 USP, WITH EACH MEAL, ORAL
     Route: 048
     Dates: start: 201302
  2. ONGLYZA (SAXAGLIPTIN HYDROCHLORIDE) TABLET, 2.5 MG [Concomitant]
  3. PREDNISONE (PREDNISONE) TABLET, 10 MG [Concomitant]
  4. MORPHINE (MORPHINE) TABLET, 100 MG [Concomitant]
  5. VIT B12 (CYANOCOBALAMIN) INJECTION [Concomitant]
  6. METOLAZONE (METOLAZONE) TABLET, 5 MG [Concomitant]
  7. CIPROFLOXACIN [Suspect]
     Indication: PANCREATITIS CHRONIC
     Dates: start: 201311
  8. ZITHROMAX [Suspect]
     Indication: PANCREATITIS CHRONIC
     Dates: start: 201311

REACTIONS (4)
  - Gastrointestinal infection [None]
  - Drug withdrawal syndrome [None]
  - Abdominal pain [None]
  - Clostridium difficile infection [None]
